FAERS Safety Report 6984832-1 (Version None)
Quarter: 2010Q3

REPORT INFORMATION
  Report Type: 
  Country: None (occurrence: None)
  Receive Date: 20100915
  Receipt Date: 20100907
  Transmission Date: 20110219
  Serious: Yes (Hospitalization)
  Sender: FDA-Public Use
  Company Number: CN-ASTRAZENECA-2010SE42015

PATIENT
  Age: 72 Year
  Sex: Female

DRUGS (4)
  1. CRESTOR [Suspect]
     Route: 048
     Dates: start: 20100701
  2. ASPIRIN [Concomitant]
  3. PLENDIL [Concomitant]
  4. NIMODIPINE [Concomitant]

REACTIONS (1)
  - LIVER INJURY [None]
